FAERS Safety Report 24295339 (Version 1)
Quarter: 2024Q3

REPORT INFORMATION
  Report Type: Spontaneous
  Country: US (occurrence: US)
  Receive Date: 20240907
  Receipt Date: 20240907
  Transmission Date: 20241017
  Serious: Yes (Other)
  Sender: APOTEX
  Company Number: US-APOTEX-2024AP010218

PATIENT
  Age: 68 Year
  Sex: Male

DRUGS (2)
  1. GEMCITABINE [Suspect]
     Active Substance: GEMCITABINE
     Indication: Enteropathy-associated T-cell lymphoma
     Dosage: UNK, 3 CYCLES
     Route: 065
  2. CISPLATIN [Suspect]
     Active Substance: CISPLATIN
     Indication: Enteropathy-associated T-cell lymphoma
     Dosage: UNK, 3 CYCLES
     Route: 065

REACTIONS (1)
  - Cytopenia [Unknown]
